FAERS Safety Report 8911619 (Version 1)
Quarter: 2012Q4

REPORT INFORMATION
  Report Type: 
  Country: AU (occurrence: AU)
  Receive Date: 20121115
  Receipt Date: 20121115
  Transmission Date: 20130627
  Serious: Yes (Other)
  Sender: FDA-Public Use
  Company Number: AU-PFIZER INC-2003027731

PATIENT
  Age: 21 Year
  Sex: Male

DRUGS (6)
  1. CYTARABINE [Suspect]
     Indication: ACUTE LYMPHOBLASTIC LEUKEMIA
     Dosage: High-dose, cycles 2, 4, 6 and 8
     Route: 065
  2. METHOTREXATE SODIUM [Concomitant]
     Indication: ACUTE LYMPHOBLASTIC LEUKEMIA
  3. CYCLOPHOSPHAMIDE [Concomitant]
     Indication: ACUTE LYMPHOBLASTIC LEUKEMIA
  4. DOXORUBICIN HCL [Concomitant]
     Indication: ACUTE LYMPHOBLASTIC LEUKEMIA
  5. VINCRISTINE SULFATE [Concomitant]
     Indication: ACUTE LYMPHOBLASTIC LEUKEMIA
  6. DEXAMETHASONE ACETATE [Concomitant]
     Indication: ACUTE LYMPHOBLASTIC LEUKEMIA

REACTIONS (1)
  - Palmar-plantar erythrodysaesthesia syndrome [Recovered/Resolved]
